FAERS Safety Report 8548123-X (Version None)
Quarter: 2012Q3

REPORT INFORMATION
  Report Type: 
  Country: None (occurrence: None)
  Receive Date: 20120730
  Receipt Date: 20120723
  Transmission Date: 20120928
  Serious: Yes (Hospitalization)
  Sender: FDA-Public Use
  Company Number: US-009507513-1207USA009818

PATIENT

DRUGS (17)
  1. FERROUS SULFATE TAB [Concomitant]
  2. SODIUM POLYSTYRENE SULFONATE [Concomitant]
  3. HYDRALAZINE HCL [Concomitant]
  4. ZOCOR [Suspect]
     Dosage: 20 MG, QD
     Route: 048
  5. DOXAZOSIN MESYLATE [Suspect]
     Dosage: 8 MG, QD
     Route: 048
  6. AMLODIPINE BESYLATE [Suspect]
     Dosage: 10 MG, QD
     Route: 048
  7. METOPROLOL TARTRATE [Concomitant]
  8. ASPIRIN [Concomitant]
  9. LANTUS [Concomitant]
  10. LACTULOSE [Concomitant]
  11. PROSCAR [Suspect]
     Dosage: 5 MG, QD
     Route: 048
  12. TRAVOPROST [Concomitant]
  13. LEVOTHYROXINE SODIUM [Concomitant]
  14. LISINOPRIL [Concomitant]
  15. ERGOCALCIFEROL [Concomitant]
  16. FUROSEMIDE [Concomitant]
  17. GEMFIBROZIL [Suspect]
     Dosage: 600 MG, UNK
     Route: 048

REACTIONS (17)
  - IRON DEFICIENCY ANAEMIA [None]
  - MUSCULAR WEAKNESS [None]
  - ABDOMINAL PAIN [None]
  - EROSIVE DUODENITIS [None]
  - PARAESTHESIA [None]
  - PAIN [None]
  - TRICUSPID VALVE INCOMPETENCE [None]
  - DRUG INTERACTION [None]
  - ABDOMINAL DISTENSION [None]
  - NECROSIS [None]
  - RENAL FAILURE CHRONIC [None]
  - MYOPATHY [None]
  - MITRAL VALVE INCOMPETENCE [None]
  - ILEUS [None]
  - GAIT DISTURBANCE [None]
  - HAEMODIALYSIS [None]
  - PAIN IN EXTREMITY [None]
